FAERS Safety Report 11311998 (Version 1)
Quarter: 2015Q3

REPORT INFORMATION
  Report Type: Spontaneous
  Country: FR (occurrence: FR)
  Receive Date: 20150727
  Receipt Date: 20150727
  Transmission Date: 20151125
  Serious: Yes (Other)
  Sender: FDA-Public Use
  Company Number: FR-SA-2015SA106988

PATIENT
  Age: 79 Year
  Sex: Male

DRUGS (8)
  1. APROVEL [Suspect]
     Active Substance: IRBESARTAN
     Route: 048
     Dates: start: 2012
  2. IMBRUVICA [Suspect]
     Active Substance: IBRUTINIB
     Dosage: (INTERRUPTION BETWEEN APRIL AND OCTOBER 2014 AND BETWEEN  31 DECEMBER AND 9 JANUARY 2015 )
     Route: 048
     Dates: start: 2013, end: 20150410
  3. AUGMENTIN [Suspect]
     Active Substance: AMOXICILLIN\CLAVULANATE POTASSIUM
     Route: 048
     Dates: start: 20141227, end: 20150420
  4. BACTRIM [Suspect]
     Active Substance: SULFAMETHOXAZOLE\TRIMETHOPRIM
     Dosage: DOSE: 0.4286  DF  (1  DF)
     Route: 065
     Dates: start: 201410, end: 20150614
  5. FLUDEX [Suspect]
     Active Substance: INDAPAMIDE
     Route: 048
     Dates: start: 2012, end: 20150614
  6. PERMIXON [Suspect]
     Active Substance: SAW PALMETTO
     Route: 048
     Dates: start: 2012, end: 20150616
  7. ACICLOVIR [Suspect]
     Active Substance: ACYCLOVIR
     Route: 048
     Dates: start: 2012
  8. LEDERFOLINE [Concomitant]
     Active Substance: LEUCOVORIN CALCIUM
     Dates: start: 201410

REACTIONS (1)
  - Cholestasis [Not Recovered/Not Resolved]

NARRATIVE: CASE EVENT DATE: 20150410
